FAERS Safety Report 11852474 (Version 2)
Quarter: 2016Q1

REPORT INFORMATION
  Report Type: Spontaneous
  Country: US (occurrence: US)
  Receive Date: 20151218
  Receipt Date: 20160113
  Transmission Date: 20160526
  Serious: Yes (Other)
  Sender: FDA-Public Use
  Company Number: US-LPDUSPRD-20151021

PATIENT
  Age: 59 Year
  Sex: Male

DRUGS (1)
  1. LIDOCAINE HCL [Suspect]
     Active Substance: LIDOCAINE HYDROCHLORIDE
     Dosage: DOSE UNKNOWN
     Route: 065

REACTIONS (1)
  - Methaemoglobinaemia [Unknown]
